FAERS Safety Report 7915085-5 (Version None)
Quarter: 2011Q4

REPORT INFORMATION
  Report Type: 
  Country: None (occurrence: None)
  Receive Date: 20111115
  Receipt Date: 20111102
  Transmission Date: 20120403
  Serious: Yes (Death)
  Sender: FDA-Public Use
  Company Number: CN-MERCK-1111CHN00094

PATIENT

DRUGS (1)
  1. CANCIDAS [Suspect]
     Indication: FUNGAL INFECTION
     Route: 042

REACTIONS (2)
  - SEPTIC SHOCK [None]
  - DRUG INEFFECTIVE [None]
